FAERS Safety Report 5527957-X (Version None)
Quarter: 2007Q4

REPORT INFORMATION
  Report Type: 
  Country: None (occurrence: None)
  Receive Date: 20071109
  Receipt Date: 20070511
  Transmission Date: 20080405
  Serious: Yes (Other)
  Sender: FDA-Public Use
  Company Number: PHEH2007US07409

PATIENT
  Age: 56 Year
  Sex: Female
  Weight: 81.6 kg

DRUGS (12)
  1. ESTRADERM [Suspect]
     Indication: MENOPAUSE
     Dosage: 0.1 MG, TRANSDERMAL
     Route: 062
     Dates: start: 19950501, end: 19960301
  2. PREMPRO [Suspect]
     Indication: MENOPAUSE
     Dosage: 0.625/25 MG PO QD, ORAL
     Route: 048
     Dates: start: 19930101, end: 20020308
  3. CYCRIN [Suspect]
     Indication: MENOPAUSE
     Dosage: 10 MG, QD, ORAL
     Route: 048
     Dates: start: 19950501, end: 19961001
  4. HORMONES NOS(NO INGREDIENTS/SUBSTANCES) [Suspect]
     Indication: MENOPAUSE
     Dates: start: 19870101, end: 19900101
  5. PREMARIN [Suspect]
     Indication: METRORRHAGIA
     Dosage: 1.25 MG, QD, ORAL
     Route: 048
     Dates: start: 19810101, end: 19820101
  6. NORVASC [Concomitant]
  7. GLUCOPHAGE [Concomitant]
  8. GLUCOTROL [Concomitant]
  9. GLYNASE [Concomitant]
  10. DYAZIDE [Concomitant]
  11. DIABETA [Concomitant]
  12. FEMARA [Concomitant]

REACTIONS (6)
  - BREAST CANCER [None]
  - BREAST CANCER METASTATIC [None]
  - BREAST MASS [None]
  - CENTRAL VENOUS CATHETERISATION [None]
  - RADICAL MASTECTOMY [None]
  - RENAL CYST [None]
